FAERS Safety Report 8051301-X (Version None)
Quarter: 2012Q1

REPORT INFORMATION
  Report Type: 
  Country: None (occurrence: None)
  Receive Date: 20120117
  Receipt Date: 20120106
  Transmission Date: 20120608
  Serious: Yes (Other)
  Sender: FDA-Public Use
  Company Number: US-ASTRAZENECA-2011SE64555

PATIENT
  Age: 79 Year
  Sex: Female

DRUGS (1)
  1. PULMICORT FLEXHALER [Suspect]
     Route: 055

REACTIONS (10)
  - BLOOD GLUCOSE INCREASED [None]
  - CONTUSION [None]
  - HYPERTENSION [None]
  - HEAD INJURY [None]
  - ROAD TRAFFIC ACCIDENT [None]
  - EXCORIATION [None]
  - CEREBRAL ATROPHY [None]
  - SKIN SWELLING [None]
  - CONCUSSION [None]
  - DIABETES MELLITUS [None]
